FAERS Safety Report 9828807 (Version 1)
Quarter: 2014Q1

REPORT INFORMATION
  Report Type: Report from Study
  Country: US (occurrence: US)
  Receive Date: 20140118
  Receipt Date: 20140118
  Transmission Date: 20141002
  Serious: Yes (Hospitalization)
  Sender: FDA-Public Use
  Company Number: US-ROCHE-1332246

PATIENT
  Age: 61 Year
  Sex: Male

DRUGS (1)
  1. CELLCEPT [Suspect]
     Indication: LIVER TRANSPLANT
     Route: 048

REACTIONS (1)
  - Coma [Unknown]
